FAERS Safety Report 8379147-3 (Version None)
Quarter: 2012Q1

REPORT INFORMATION
  Report Type: 
  Country: None (occurrence: None)
  Receive Date: 20120323
  Receipt Date: 20110316
  Transmission Date: 20120608
  Serious: Yes (Other)
  Sender: FDA-Public Use
  Company Number: 163-21880-11032153

PATIENT
  Age: 70 Year
  Sex: Male
  Weight: 56.2 kg

DRUGS (2)
  1. REVLIMID [Suspect]
     Indication: MULTIPLE MYELOMA
     Dosage: 25 MG, DAILY X 21 DAYS, PO ; 15 MG, DAILY X 21 DAYS, PO
     Route: 048
     Dates: start: 20110118
  2. REVLIMID [Suspect]
     Indication: MULTIPLE MYELOMA
     Dosage: 25 MG, DAILY X 21 DAYS, PO ; 15 MG, DAILY X 21 DAYS, PO
     Route: 048
     Dates: start: 20110301

REACTIONS (3)
  - PRURITUS [None]
  - RASH [None]
  - OEDEMA PERIPHERAL [None]
